FAERS Safety Report 6572100-1 (Version None)
Quarter: 2010Q1

REPORT INFORMATION
  Report Type: 
  Country: None (occurrence: None)
  Receive Date: 20100205
  Receipt Date: 20100125
  Transmission Date: 20100710
  Serious: Yes (Hospitalization)
  Sender: FDA-Public Use
  Company Number: PHHY2009JP32946

PATIENT
  Sex: Male
  Weight: 69 kg

DRUGS (5)
  1. DIOVAN [Suspect]
     Indication: HYPERTENSION
     Dosage: 80 MG, QD
     Route: 048
     Dates: start: 20061115, end: 20090804
  2. MEVALOTIN [Concomitant]
     Dosage: 10 MG, UNK
     Route: 048
     Dates: start: 20061115, end: 20090803
  3. TAKEPRON [Concomitant]
     Dosage: 30 MG, UNK
     Route: 048
     Dates: start: 20080722, end: 20090803
  4. DEPAS [Concomitant]
     Route: 048
  5. BUFFERIN [Concomitant]
     Dosage: 81 MG, UNK
     Route: 048

REACTIONS (11)
  - ABASIA [None]
  - BACK PAIN [None]
  - BLOOD CHLORIDE DECREASED [None]
  - DECREASED APPETITE [None]
  - HEPATIC FUNCTION ABNORMAL [None]
  - HEPATITIS [None]
  - HYPOAESTHESIA [None]
  - HYPONATRAEMIA [None]
  - LUMBAR SPINAL STENOSIS [None]
  - ORTHOPEDIC PROCEDURE [None]
  - SPINAL FUSION SURGERY [None]
